FAERS Safety Report 9469836 (Version 1)
Quarter: 2013Q3

REPORT INFORMATION
  Report Type: Spontaneous
  Country: US (occurrence: None)
  Receive Date: 20130820
  Receipt Date: 20130820
  Transmission Date: 20140515
  Serious: Yes (Other)
  Sender: FDA-Public Use
  Company Number: None

PATIENT
  Age: 46 Year
  Sex: Female

DRUGS (1)
  1. LEXAPRO [Suspect]
     Dosage: ONE DAILY ORAL
     Route: 048
     Dates: start: 20130324, end: 20130424

REACTIONS (3)
  - Panic attack [None]
  - Feeling abnormal [None]
  - Drug effect decreased [None]
